FAERS Safety Report 24025882 (Version 1)
Quarter: 2024Q2

REPORT INFORMATION
  Report Type: Spontaneous
  Country: US (occurrence: US)
  Receive Date: 20240628
  Receipt Date: 20240628
  Transmission Date: 20240716
  Serious: No
  Sender: FDA-Public Use
  Company Number: US-AUROBINDO-AUR-APL-2023-069097

PATIENT
  Sex: Female

DRUGS (3)
  1. AZELASTINE HYDROCHLORIDE [Suspect]
     Active Substance: AZELASTINE HYDROCHLORIDE
     Indication: Nasal congestion
     Dosage: 1 DOSAGE FORM, TWO TIMES A DAY (01 SPRAY IN EACH NOSTRIL TWICE A DAY)
     Route: 045
     Dates: start: 20231109
  2. AZELASTINE HYDROCHLORIDE [Suspect]
     Active Substance: AZELASTINE HYDROCHLORIDE
     Indication: Nasopharyngitis
  3. LIDO [Concomitant]
     Indication: Cough
     Dosage: UNK (ONLY FOR 10 DAYS)
     Route: 065

REACTIONS (1)
  - Wrong technique in product usage process [Unknown]
